FAERS Safety Report 25803492 (Version 2)
Quarter: 2025Q3

REPORT INFORMATION
  Report Type: Spontaneous
  Country: US (occurrence: US)
  Receive Date: 20250915
  Receipt Date: 20250929
  Transmission Date: 20251020
  Serious: No
  Sender: MYLAN
  Company Number: US-MYLANLABS-2025M1076319

PATIENT
  Age: 11 Year
  Sex: Male
  Weight: 43.09 kg

DRUGS (12)
  1. METHYLPHENIDATE [Suspect]
     Active Substance: METHYLPHENIDATE
     Indication: Attention deficit hyperactivity disorder
     Dosage: 30 MILLIGRAM, QD (STARTING IN THE MORNINGS AND FOR 9 HOURS)
     Dates: start: 202506
  2. METHYLPHENIDATE [Suspect]
     Active Substance: METHYLPHENIDATE
     Dosage: 30 MILLIGRAM, QD (STARTING IN THE MORNINGS AND FOR 9 HOURS)
     Route: 062
     Dates: start: 202506
  3. METHYLPHENIDATE [Suspect]
     Active Substance: METHYLPHENIDATE
     Dosage: 30 MILLIGRAM, QD (STARTING IN THE MORNINGS AND FOR 9 HOURS)
     Route: 062
     Dates: start: 202506
  4. METHYLPHENIDATE [Suspect]
     Active Substance: METHYLPHENIDATE
     Dosage: 30 MILLIGRAM, QD (STARTING IN THE MORNINGS AND FOR 9 HOURS)
     Dates: start: 202506
  5. METHYLPHENIDATE [Suspect]
     Active Substance: METHYLPHENIDATE
     Indication: Attention deficit hyperactivity disorder
     Dosage: 20 MILLIGRAM, QD (STARTING IN THE MORNINGS AND FOR 9 HOURS)
     Dates: start: 202508
  6. METHYLPHENIDATE [Suspect]
     Active Substance: METHYLPHENIDATE
     Dosage: 20 MILLIGRAM, QD (STARTING IN THE MORNINGS AND FOR 9 HOURS)
     Route: 062
     Dates: start: 202508
  7. METHYLPHENIDATE [Suspect]
     Active Substance: METHYLPHENIDATE
     Dosage: 20 MILLIGRAM, QD (STARTING IN THE MORNINGS AND FOR 9 HOURS)
     Route: 062
     Dates: start: 202508
  8. METHYLPHENIDATE [Suspect]
     Active Substance: METHYLPHENIDATE
     Dosage: 20 MILLIGRAM, QD (STARTING IN THE MORNINGS AND FOR 9 HOURS)
     Dates: start: 202508
  9. DAYTRANA [Concomitant]
     Active Substance: METHYLPHENIDATE
  10. DAYTRANA [Concomitant]
     Active Substance: METHYLPHENIDATE
     Route: 065
  11. DAYTRANA [Concomitant]
     Active Substance: METHYLPHENIDATE
     Route: 065
  12. DAYTRANA [Concomitant]
     Active Substance: METHYLPHENIDATE

REACTIONS (1)
  - Drug ineffective [Unknown]

NARRATIVE: CASE EVENT DATE: 20250601
